FAERS Safety Report 6613210-X (Version None)
Quarter: 2010Q1

REPORT INFORMATION
  Report Type: 
  Country: None (occurrence: None)
  Receive Date: 20100304
  Receipt Date: 20100219
  Transmission Date: 20100710
  Serious: Yes (Hospitalization)
  Sender: FDA-Public Use
  Company Number: US-JNJFOC-20100210341

PATIENT
  Age: 3 Year
  Sex: Male
  Weight: 15 kg

DRUGS (1)
  1. CHILDRENS TYLENOL PLUS COLD [Suspect]
     Indication: NASOPHARYNGITIS
     Route: 048

REACTIONS (5)
  - ACCIDENTAL DRUG INTAKE BY CHILD [None]
  - CONFUSIONAL STATE [None]
  - HYPERTENSION [None]
  - LIVER FUNCTION TEST ABNORMAL [None]
  - VOMITING [None]
